FAERS Safety Report 11043226 (Version 1)
Quarter: 2015Q2

REPORT INFORMATION
  Report Type: Report from Study
  Country: AT (occurrence: AT)
  Receive Date: 20150417
  Receipt Date: 20150417
  Transmission Date: 20150821
  Serious: Yes (Hospitalization)
  Sender: FDA-Public Use
  Company Number: AT-TEVA-534498USA

PATIENT
  Age: 29 Year
  Sex: Female

DRUGS (2)
  1. BENDAMUSTINE HYDROCHLORIDE [Suspect]
     Active Substance: BENDAMUSTINE HYDROCHLORIDE
     Indication: BREAST CANCER
     Dosage: 80 MG/M2, EVERY 3 WEEKS, DAY 1 AND DAY 8
     Route: 042
     Dates: start: 20140521, end: 20141015
  2. CAPECITABINE. [Suspect]
     Active Substance: CAPECITABINE
     Indication: BREAST CANCER
     Dosage: 100 MG/M2, TWICE DAILY, EVERY 3 WEEKS, DAY 1 AND DAY 8
     Route: 048
     Dates: start: 20141127, end: 20141210

REACTIONS (1)
  - Herpes zoster [Recovered/Resolved]

NARRATIVE: CASE EVENT DATE: 20141214
